FAERS Safety Report 7908459-X (Version None)
Quarter: 2011Q4

REPORT INFORMATION
  Report Type: 
  Country: None (occurrence: None)
  Receive Date: 20111111
  Receipt Date: 20111108
  Transmission Date: 20120403
  Serious: Yes (Hospitalization)
  Sender: FDA-Public Use
  Company Number: US-BRACCO-007104

PATIENT
  Age: 66 Year
  Sex: Female

DRUGS (5)
  1. LISINOPRIL [Concomitant]
  2. LOPRESSOR [Concomitant]
  3. COUMADIN [Concomitant]
  4. IOPAMIDOL [Suspect]
     Indication: CARDIAC STRESS TEST
     Route: 013
     Dates: start: 20111103, end: 20111103
  5. IOPAMIDOL [Suspect]
     Indication: ANGIOGRAM
     Route: 013
     Dates: start: 20111103, end: 20111103

REACTIONS (5)
  - VOMITING [None]
  - VENTRICULAR TACHYCARDIA [None]
  - HYPOTENSION [None]
  - HYPERTENSION [None]
  - ERYTHEMA [None]
